FAERS Safety Report 20623381 (Version 2)
Quarter: 2022Q2

REPORT INFORMATION
  Report Type: Spontaneous
  Country: CA (occurrence: CA)
  Receive Date: 20220322
  Receipt Date: 20220621
  Transmission Date: 20220720
  Serious: Yes (Hospitalization, Other)
  Sender: FDA-Public Use
  Company Number: CA-BAUSCH-BL-2022-006865

PATIENT
  Age: 11 Year
  Sex: Male

DRUGS (81)
  1. LORAZEPAM [Suspect]
     Active Substance: LORAZEPAM
     Indication: Seizure
     Route: 060
  2. LORAZEPAM [Suspect]
     Active Substance: LORAZEPAM
     Indication: Pain management
     Route: 060
  3. LORAZEPAM [Suspect]
     Active Substance: LORAZEPAM
     Indication: Muscle spasms
     Route: 065
  4. LORAZEPAM [Suspect]
     Active Substance: LORAZEPAM
     Indication: Child abuse
  5. LORAZEPAM [Suspect]
     Active Substance: LORAZEPAM
     Indication: Back pain
  6. ALBUTEROL [Suspect]
     Active Substance: ALBUTEROL
     Indication: Child abuse
     Route: 055
  7. ALBUTEROL [Suspect]
     Active Substance: ALBUTEROL
     Route: 055
  8. ALBUTEROL [Suspect]
     Active Substance: ALBUTEROL
     Route: 055
  9. ALBUTEROL [Suspect]
     Active Substance: ALBUTEROL
     Route: 065
  10. ARIPIPRAZOLE [Suspect]
     Active Substance: ARIPIPRAZOLE
     Indication: Child abuse
     Route: 048
  11. ARIPIPRAZOLE [Suspect]
     Active Substance: ARIPIPRAZOLE
     Route: 048
  12. BACLOFEN [Suspect]
     Active Substance: BACLOFEN
     Indication: Child abuse
     Route: 048
  13. BACLOFEN [Suspect]
     Active Substance: BACLOFEN
     Route: 048
  14. BISACODYL [Suspect]
     Active Substance: BISACODYL
     Indication: Product used for unknown indication
     Route: 065
  15. BISACODYL [Suspect]
     Active Substance: BISACODYL
     Route: 065
  16. CELECOXIB [Suspect]
     Active Substance: CELECOXIB
     Indication: Pain management
     Route: 048
  17. CELECOXIB [Suspect]
     Active Substance: CELECOXIB
     Indication: Child abuse
  18. CELECOXIB [Suspect]
     Active Substance: CELECOXIB
     Indication: Back pain
  19. CLOBAZAM [Suspect]
     Active Substance: CLOBAZAM
     Indication: Child abuse
     Route: 048
  20. CLOBAZAM [Suspect]
     Active Substance: CLOBAZAM
     Indication: Back pain
  21. CLONIDINE [Suspect]
     Active Substance: CLONIDINE
     Indication: Child abuse
     Route: 048
  22. CLONIDINE [Suspect]
     Active Substance: CLONIDINE
     Route: 048
  23. CLONIDINE [Suspect]
     Active Substance: CLONIDINE
     Route: 048
  24. CLONIDINE [Suspect]
     Active Substance: CLONIDINE
     Route: 048
  25. DIMENHYDRINATE [Suspect]
     Active Substance: DIMENHYDRINATE
     Indication: Constipation
     Route: 048
  26. DIMENHYDRINATE [Suspect]
     Active Substance: DIMENHYDRINATE
     Indication: Child abuse
     Route: 048
  27. DIMENHYDRINATE [Suspect]
     Active Substance: DIMENHYDRINATE
     Route: 048
  28. DIMENHYDRINATE [Suspect]
     Active Substance: DIMENHYDRINATE
     Route: 048
  29. DIMENHYDRINATE [Suspect]
     Active Substance: DIMENHYDRINATE
     Route: 048
  30. DIPHENHYDRAMINE [Suspect]
     Active Substance: DIPHENHYDRAMINE
     Indication: Pruritus
     Route: 048
  31. DIPHENHYDRAMINE [Suspect]
     Active Substance: DIPHENHYDRAMINE
     Indication: Child abuse
  32. DOCONEXENT [Suspect]
     Active Substance: DOCONEXENT
     Indication: Product used for unknown indication
     Route: 065
  33. DULCOLAX NOS [Suspect]
     Active Substance: BISACODYL OR DOCUSATE SODIUM
     Indication: Child abuse
     Route: 048
  34. FLUOXETINE HYDROCHLORIDE [Suspect]
     Active Substance: FLUOXETINE HYDROCHLORIDE
     Indication: Child abuse
     Route: 048
  35. FLUTICASONE FUROATE [Suspect]
     Active Substance: FLUTICASONE FUROATE
     Indication: Child abuse
     Route: 055
  36. FLUTICASONE PROPIONATE [Suspect]
     Active Substance: FLUTICASONE PROPIONATE
     Indication: Child abuse
     Route: 065
  37. FLUTICASONE PROPIONATE [Suspect]
     Active Substance: FLUTICASONE PROPIONATE
     Route: 055
  38. FLUTICASONE PROPIONATE [Suspect]
     Active Substance: FLUTICASONE PROPIONATE
     Route: 055
  39. GABAPENTIN [Suspect]
     Active Substance: GABAPENTIN
     Indication: Pain management
     Route: 048
  40. GABAPENTIN [Suspect]
     Active Substance: GABAPENTIN
     Indication: Child abuse
     Route: 048
  41. GABAPENTIN [Suspect]
     Active Substance: GABAPENTIN
     Indication: Back pain
  42. GLYCOLIC ACID [Suspect]
     Active Substance: GLYCOLIC ACID
     Indication: Product used for unknown indication
     Route: 065
  43. HYDROMORPHONE [Suspect]
     Active Substance: HYDROMORPHONE
     Indication: Pain management
     Route: 048
  44. HYDROMORPHONE [Suspect]
     Active Substance: HYDROMORPHONE
     Indication: Child abuse
     Route: 065
  45. HYDROMORPHONE [Suspect]
     Active Substance: HYDROMORPHONE
     Indication: Back pain
  46. LEUPROLIDE ACETATE [Suspect]
     Active Substance: LEUPROLIDE ACETATE
     Indication: Child abuse
     Route: 030
  47. POLYETHYLENE GLYCOL 3350 [Suspect]
     Active Substance: POLYETHYLENE GLYCOL 3350
     Indication: Product used for unknown indication
     Route: 048
  48. POLYETHYLENE GLYCOL 3350 [Suspect]
     Active Substance: POLYETHYLENE GLYCOL 3350
     Indication: Child abuse
  49. MELATONIN [Suspect]
     Active Substance: MELATONIN
     Indication: Sleep deficit
     Route: 048
  50. MELATONIN [Suspect]
     Active Substance: MELATONIN
     Indication: Child abuse
     Route: 048
  51. METHADONE [Suspect]
     Active Substance: METHADONE HYDROCHLORIDE
     Indication: Child abuse
     Route: 048
  52. METHADONE [Suspect]
     Active Substance: METHADONE HYDROCHLORIDE
     Indication: Back pain
  53. METHOCARBAMOL [Suspect]
     Active Substance: METHOCARBAMOL
     Indication: Product used for unknown indication
     Route: 065
  54. MONTELUKAST [Suspect]
     Active Substance: MONTELUKAST SODIUM
     Indication: Pain
     Route: 048
  55. MONTELUKAST [Suspect]
     Active Substance: MONTELUKAST SODIUM
     Indication: Child abuse
  56. PANTOPRAZOLE [Suspect]
     Active Substance: PANTOPRAZOLE
     Indication: Child abuse
     Route: 048
  57. PHENOBARBITAL [Suspect]
     Active Substance: PHENOBARBITAL
     Indication: Child abuse
     Route: 048
  58. POTASSIUM CHLORIDE [Suspect]
     Active Substance: POTASSIUM CHLORIDE
     Indication: Product used for unknown indication
     Route: 065
  59. ROBAXISAL [Interacting]
     Active Substance: ASPIRIN\METHOCARBAMOL
     Indication: Product used for unknown indication
     Route: 065
  60. ROBAXISAL [Interacting]
     Active Substance: ASPIRIN\METHOCARBAMOL
     Route: 048
  61. SODIUM BICARBONATE [Suspect]
     Active Substance: SODIUM BICARBONATE
     Indication: Product used for unknown indication
     Route: 065
  62. TYLENOL [Suspect]
     Active Substance: ACETAMINOPHEN
     Indication: Product used for unknown indication
     Route: 065
  63. VITAMIN C [Suspect]
     Active Substance: ASCORBIC ACID
     Indication: Child abuse
     Route: 048
  64. VITAMIN D3 [Suspect]
     Active Substance: CHOLECALCIFEROL
     Indication: Vitamin supplementation
     Route: 048
  65. VITAMIN D3 [Suspect]
     Active Substance: CHOLECALCIFEROL
     Indication: Child abuse
  66. ACETAMINOPHEN\METHOCARBAMOL [Suspect]
     Active Substance: ACETAMINOPHEN\METHOCARBAMOL
     Indication: Child abuse
     Route: 065
  67. ACETAMINOPHEN\METHOCARBAMOL [Suspect]
     Active Substance: ACETAMINOPHEN\METHOCARBAMOL
     Indication: Back pain
     Route: 065
  68. ACETAMINOPHEN\METHOCARBAMOL [Suspect]
     Active Substance: ACETAMINOPHEN\METHOCARBAMOL
     Route: 065
  69. ACETAMINOPHEN\METHOCARBAMOL [Suspect]
     Active Substance: ACETAMINOPHEN\METHOCARBAMOL
     Route: 065
  70. ACETAMINOPHEN\METHOCARBAMOL [Suspect]
     Active Substance: ACETAMINOPHEN\METHOCARBAMOL
     Route: 048
  71. FISH OIL [Suspect]
     Active Substance: FISH OIL
     Indication: Product used for unknown indication
     Dosage: FISH OIL 600 EPA/300 DHA
     Route: 048
  72. FLUOXETINE HYDROCHLORIDE [Suspect]
     Active Substance: FLUOXETINE HYDROCHLORIDE
     Indication: Product used for unknown indication
     Route: 048
  73. HYDROMORPHONE HYDROCHLORIDE [Suspect]
     Active Substance: HYDROMORPHONE HYDROCHLORIDE
     Indication: Pain management
     Route: 065
  74. HYDROMORPHONE HYDROCHLORIDE [Suspect]
     Active Substance: HYDROMORPHONE HYDROCHLORIDE
     Indication: Child abuse
  75. HYDROMORPHONE HYDROCHLORIDE [Suspect]
     Active Substance: HYDROMORPHONE HYDROCHLORIDE
     Indication: Back pain
  76. HYDROXYCHLOROQUINE SULFATE [Suspect]
     Active Substance: HYDROXYCHLOROQUINE SULFATE
     Indication: Child abuse
     Route: 048
  77. KETOROLAC TROMETHAMINE [Suspect]
     Active Substance: KETOROLAC TROMETHAMINE
     Indication: Pain
     Route: 048
  78. KETOROLAC TROMETHAMINE [Suspect]
     Active Substance: KETOROLAC TROMETHAMINE
     Indication: Child abuse
  79. RANITIDINE HYDROCHLORIDE [Suspect]
     Active Substance: RANITIDINE HYDROCHLORIDE
     Indication: Child abuse
     Route: 048
  80. VITAMIN C [Concomitant]
     Active Substance: ASCORBIC ACID
     Indication: Product used for unknown indication
  81. POLYETHYLENE GLYCOL\POTASSIUM CHLORIDE\SODIUM BICARBONATE [Concomitant]
     Active Substance: POLYETHYLENE GLYCOL\POTASSIUM CHLORIDE\SODIUM BICARBONATE
     Indication: Product used for unknown indication

REACTIONS (14)
  - Juvenile idiopathic arthritis [Recovered/Resolved]
  - Epidural lipomatosis [Recovered/Resolved]
  - Obesity [Recovered/Resolved]
  - Respiratory depression [Recovered/Resolved]
  - Drug abuse [Recovered/Resolved]
  - Drug dependence [Recovered/Resolved]
  - Drug ineffective [Recovered/Resolved]
  - Victim of child abuse [Recovered/Resolved]
  - Intentional product misuse [Recovered/Resolved]
  - Product prescribing error [Recovered/Resolved]
  - Product use issue [Recovered/Resolved]
  - Off label use [Recovered/Resolved]
  - Off label use [Recovered/Resolved]
  - Off label use [Recovered/Resolved]
